FAERS Safety Report 15099284 (Version 1)
Quarter: 2018Q3

REPORT INFORMATION
  Report Type: Spontaneous
  Country: US (occurrence: US)
  Receive Date: 20180702
  Receipt Date: 20180702
  Transmission Date: 20181010
  Serious: Yes (Hospitalization, Other)
  Sender: FDA-Public Use
  Company Number: US-PFIZER INC-2018135295

PATIENT
  Age: 7 Year
  Sex: Female
  Weight: 29.25 kg

DRUGS (8)
  1. DESMOPRESSIN [Concomitant]
     Active Substance: DESMOPRESSIN
     Dosage: 0.27 MG, DAILY
  2. GENOTROPIN [Suspect]
     Active Substance: SOMATROPIN
     Indication: GROWTH HORMONE DEFICIENCY
     Dosage: 0.6 MG, 1X/DAY
     Dates: start: 20180310
  3. DDAVP [Concomitant]
     Active Substance: DESMOPRESSIN ACETATE
     Dosage: UNK
  4. GENOTROPIN [Suspect]
     Active Substance: SOMATROPIN
     Dosage: 0.6 MG, 1X/DAY
  5. GENOTROPIN [Suspect]
     Active Substance: SOMATROPIN
     Dosage: 1 MG, 1X/DAY (NIGHTLY)
     Route: 058
     Dates: start: 201803, end: 201806
  6. SYNTHROID [Concomitant]
     Active Substance: LEVOTHYROXINE SODIUM
     Indication: HYPOPITUITARISM
     Dosage: 0.05 MG, 1X/DAY
  7. CORTEF [Concomitant]
     Active Substance: HYDROCORTISONE
     Dosage: 8.75 MG, DAILY
  8. GENOTROPIN [Suspect]
     Active Substance: SOMATROPIN
     Dosage: 1.0 MG, 1X/DAY

REACTIONS (5)
  - Device leakage [Unknown]
  - Disease progression [Unknown]
  - Underdose [Unknown]
  - Brain neoplasm [Unknown]
  - Device malfunction [Unknown]

NARRATIVE: CASE EVENT DATE: 20180329
